FAERS Safety Report 14228702 (Version 2)
Quarter: 2018Q1

REPORT INFORMATION
  Report Type: Spontaneous
  Country: US (occurrence: US)
  Receive Date: 20171128
  Receipt Date: 20180227
  Transmission Date: 20180508
  Serious: Yes (Hospitalization, Other)
  Sender: FDA-Public Use
  Company Number: US-BRISTOL-MYERS SQUIBB COMPANY-BMS-2017-105750

PATIENT
  Sex: Female
  Weight: 172.3 kg

DRUGS (1)
  1. OPDIVO [Suspect]
     Active Substance: NIVOLUMAB
     Indication: MALIGNANT MELANOMA
     Route: 042

REACTIONS (11)
  - Swelling [Not Recovered/Not Resolved]
  - Dyspepsia [Unknown]
  - Pain [Unknown]
  - Abdominal pain upper [Unknown]
  - Chest pain [Unknown]
  - Malaise [Unknown]
  - Weight increased [Unknown]
  - Skin disorder [Unknown]
  - Hypoaesthesia [Unknown]
  - Contusion [Unknown]
  - Malignant neoplasm progression [Unknown]
